FAERS Safety Report 14908647 (Version 2)
Quarter: 2018Q3

REPORT INFORMATION
  Report Type: Spontaneous
  Country: US (occurrence: US)
  Receive Date: 20180517
  Receipt Date: 20180930
  Transmission Date: 20181010
  Serious: No
  Sender: FDA-Public Use
  Company Number: US-PHARMING-PHAUS2018000333

PATIENT

DRUGS (1)
  1. RUCONEST [Suspect]
     Active Substance: HUMAN C1-ESTERASE INHIBITOR
     Indication: HEREDITARY ANGIOEDEMA
     Dosage: 6300 IU, EVERY 3 DAYS AS NEEDED
     Route: 042
     Dates: start: 20180109

REACTIONS (1)
  - General physical health deterioration [Not Recovered/Not Resolved]

NARRATIVE: CASE EVENT DATE: 2018
